FAERS Safety Report 4423743-2 (Version None)
Quarter: 2004Q3

REPORT INFORMATION
  Report Type: 
  Country: None (occurrence: None)
  Receive Date: 20040714
  Receipt Date: 20040420
  Transmission Date: 20050211
  Serious: Yes (Other)
  Sender: FDA-Public Use
  Company Number: HQWYE579923APR04

PATIENT
  Age: 79 Year
  Sex: Female
  Weight: 54.48 kg

DRUGS (6)
  1. ALAVERT [Suspect]
     Indication: HYPERSENSITIVITY
     Dosage: 1 TABLET 1X PER 1 DAY, ORAL
     Route: 048
     Dates: start: 20040418, end: 20040419
  2. NOROXIN [Concomitant]
  3. EVISTA [Concomitant]
  4. ATENOLL (ATENOLOL) [Concomitant]
  5. RELAFEN [Concomitant]
  6. OS-CAL (CALCIUM/ERGOCALCIFEROL) [Concomitant]

REACTIONS (1)
  - SOMNOLENCE [None]
